FAERS Safety Report 13772806 (Version 1)
Quarter: 2017Q3

REPORT INFORMATION
  Report Type: Spontaneous
  Country: US (occurrence: US)
  Receive Date: 20170720
  Receipt Date: 20170720
  Transmission Date: 20171127
  Serious: No
  Sender: FDA-Public Use
  Company Number: US-PERRIGO-17US003267

PATIENT
  Age: 39 Year
  Sex: Female
  Weight: 71.66 kg

DRUGS (2)
  1. MICONAZOLE 1 [Suspect]
     Active Substance: MICONAZOLE NITRATE
     Indication: VAGINAL ODOUR
     Dosage: 1200 MG, SINGLE
     Route: 067
     Dates: start: 20170409, end: 20170409
  2. MICONAZOLE 1 [Suspect]
     Active Substance: MICONAZOLE NITRATE
     Indication: VAGINAL ODOUR
     Dosage: SMALL AMOUNT, SINGLE
     Route: 061
     Dates: start: 20170409, end: 20170409

REACTIONS (7)
  - Micturition urgency [Recovered/Resolved]
  - Vulvovaginal pruritus [Recovered/Resolved]
  - Urinary tract infection [Recovered/Resolved]
  - Vulvovaginal pain [Recovered/Resolved]
  - Condition aggravated [Recovered/Resolved]
  - Vulvovaginal burning sensation [Recovering/Resolving]
  - Drug ineffective for unapproved indication [Unknown]

NARRATIVE: CASE EVENT DATE: 20170409
